FAERS Safety Report 5521408-7 (Version None)
Quarter: 2007Q4

REPORT INFORMATION
  Report Type: 
  Country: None (occurrence: None)
  Receive Date: 20071119
  Receipt Date: 20071107
  Transmission Date: 20080405
  Serious: Yes (Disabling)
  Sender: FDA-Public Use
  Company Number: GB-PFIZER INC-2007094392

PATIENT
  Age: 39 Year
  Sex: Female

DRUGS (2)
  1. CHAMPIX [Suspect]
     Route: 048
     Dates: start: 20070705, end: 20070921
  2. FLUOXETINE [Concomitant]
     Route: 048
     Dates: start: 20030101, end: 20070921

REACTIONS (1)
  - HYPOMANIA [None]
